FAERS Safety Report 7486380-1 (Version None)
Quarter: 2011Q2

REPORT INFORMATION
  Report Type: 
  Country: None (occurrence: None)
  Receive Date: 20110517
  Receipt Date: 20110513
  Transmission Date: 20111010
  Serious: Yes (Hospitalization)
  Sender: FDA-Public Use
  Company Number: US-MEDIMMUNE-MEDI-0012934

PATIENT
  Sex: Female
  Weight: 3.7 kg

DRUGS (3)
  1. CAFFEINE [Concomitant]
  2. SYNAGIS [Suspect]
     Route: 030
     Dates: start: 20110106, end: 20110106
  3. PREVACID [Concomitant]

REACTIONS (5)
  - RESPIRATORY SYNCYTIAL VIRUS INFECTION [None]
  - PNEUMONIA [None]
  - INFLUENZA [None]
  - NASAL CONGESTION [None]
  - COUGH [None]
